FAERS Safety Report 9199832 (Version 1)
Quarter: 2013Q1

REPORT INFORMATION
  Report Type: Report from Study
  Country: IT (occurrence: IT)
  Receive Date: 20130329
  Receipt Date: 20130329
  Transmission Date: 20140127
  Serious: Yes (Death, Other)
  Sender: FDA-Public Use
  Company Number: IT-ROCHE-1207341

PATIENT
  Sex: 0

DRUGS (1)
  1. ALTEPLASE [Suspect]
     Indication: ISCHAEMIC STROKE
     Route: 042

REACTIONS (10)
  - Cerebral infarction [Fatal]
  - Death [Fatal]
  - Haemorrhage intracranial [Unknown]
  - Ischaemic stroke [Unknown]
  - Haemorrhage [Unknown]
  - Pulmonary embolism [Unknown]
  - Myocardial infarction [Unknown]
  - Sepsis [Unknown]
  - Deep vein thrombosis [Unknown]
  - Pulmonary oedema [Unknown]
